FAERS Safety Report 13289157 (Version 7)
Quarter: 2018Q2

REPORT INFORMATION
  Report Type: Spontaneous
  Country: DE (occurrence: DE)
  Receive Date: 20170302
  Receipt Date: 20180427
  Transmission Date: 20180711
  Serious: Yes (Other)
  Sender: FDA-Public Use
  Company Number: DE-AUROBINDO-AUR-APL-2017-30188

PATIENT
  Age: 65 Year
  Sex: Female

DRUGS (44)
  1. ONDANSETRON [Interacting]
     Active Substance: ONDANSETRON
     Indication: PROPHYLAXIS OF NAUSEA AND VOMITING
     Dosage: 8 MILLIGRAM, DAILY
     Route: 065
  2. LORAZEPAM. [Suspect]
     Active Substance: LORAZEPAM
     Indication: SEIZURE
     Dosage: 1 MG, AS REQUIERD
     Route: 065
  3. TEMOZOLOMIDE. [Suspect]
     Active Substance: TEMOZOLOMIDE
     Dosage: 50 MG/M2/DAY ()
     Route: 048
  4. LORAZEPAM. [Suspect]
     Active Substance: LORAZEPAM
     Indication: PARTIAL SEIZURES
     Dosage: 1 MG/DAY P.R.N ()
  5. LORAZEPAM. [Suspect]
     Active Substance: LORAZEPAM
     Dosage: ()
  6. CLOBAZAM [Suspect]
     Active Substance: CLOBAZAM
     Dosage: ()
  7. CLOBAZAM [Suspect]
     Active Substance: CLOBAZAM
  8. TEMOZOLOMIDE. [Suspect]
     Active Substance: TEMOZOLOMIDE
     Dosage: 150 MG/M2/D/CYCLE, 5 DAYS ON, 23 DAYS OFF FOR FIRST TWO CYCLES ()
     Route: 048
  9. ARTESUNATE [Suspect]
     Active Substance: ARTESUNATE
     Indication: GLIOBLASTOMA MULTIFORME
     Dosage: 200 MILLIGRAM
     Dates: start: 20150920, end: 20150920
  10. CLOBAZAM [Suspect]
     Active Substance: CLOBAZAM
     Indication: EPILEPSY
     Dosage: 5 MILLIGRAM
  11. TEMOZOLOMIDE. [Suspect]
     Active Substance: TEMOZOLOMIDE
     Dosage: 200 MG/M2/D/CYCLE, 5 DAYS ON, 23 DAYS OFF FOR SUBSEQUENT CYCLES ()
  12. TEMOZOLOMIDE. [Suspect]
     Active Substance: TEMOZOLOMIDE
     Dosage: 150 MG/M2/D/CYCLE, 5 DAYS ON, 23 DAYS OFF FOR FIRST TWO CYCLES ()
     Route: 048
  13. TEMOZOLOMIDE. [Suspect]
     Active Substance: TEMOZOLOMIDE
     Dosage: 150 MG/M2/D/CYCLE, 5 DAYS ON, 23 DAYS OFF FOR FIRST TWO CYCLES ()
     Route: 048
  14. TEMOZOLOMIDE. [Suspect]
     Active Substance: TEMOZOLOMIDE
     Route: 048
  15. LEVETIRACETAM. [Suspect]
     Active Substance: LEVETIRACETAM
     Indication: PARTIAL SEIZURES
     Dosage: 1000 MG/D STARTING DOSE ()
  16. VALPROIC ACID. [Suspect]
     Active Substance: VALPROIC ACID
     Dosage: UNKNOWN DOSE ()
  17. LORAZEPAM. [Suspect]
     Active Substance: LORAZEPAM
     Dosage: ()
  18. TEMOZOLOMIDE. [Suspect]
     Active Substance: TEMOZOLOMIDE
     Dosage: 50 MG/M2/DAY ()
     Route: 048
     Dates: start: 2014
  19. LEVETIRACETAM. [Suspect]
     Active Substance: LEVETIRACETAM
     Indication: EPILEPSY
     Dosage: 2750 MG, UNK
     Route: 065
  20. VALPROIC ACID. [Suspect]
     Active Substance: VALPROIC ACID
     Indication: GLIOBLASTOMA MULTIFORME
     Dosage: UNK
     Route: 065
  21. LORAZEPAM. [Suspect]
     Active Substance: LORAZEPAM
     Dosage: ()
  22. CLOBAZAM [Suspect]
     Active Substance: CLOBAZAM
     Indication: SEIZURE
     Dosage: 5 MG, UNK
     Route: 065
  23. CLOBAZAM [Suspect]
     Active Substance: CLOBAZAM
     Indication: PARTIAL SEIZURES
     Dosage: 5 MG/D P.R.N ()
  24. TEMOZOLOMIDE. [Suspect]
     Active Substance: TEMOZOLOMIDE
     Dosage: 200 MG/M2/D/CYCLE, 5 DAYS ON, 23 DAYS OFF FOR SUBSEQUENT CYCLES ()
  25. TEMOZOLOMIDE. [Suspect]
     Active Substance: TEMOZOLOMIDE
     Dosage: 200 MG/M2/D/CYCLE, 5 DAYS ON, 23 DAYS OFF FOR SUBSEQUENT CYCLES ()
  26. ONDANSETRON [Interacting]
     Active Substance: ONDANSETRON
     Indication: NAUSEA
  27. VALPROIC ACID. [Suspect]
     Active Substance: VALPROIC ACID
     Dosage: ()
  28. LORAZEPAM. [Suspect]
     Active Substance: LORAZEPAM
     Indication: EPILEPSY
     Dosage: AS REQUIERD
  29. LORAZEPAM. [Suspect]
     Active Substance: LORAZEPAM
     Dosage: 1 MG/DAY P.R.N ()
  30. ARTESUNATE [Suspect]
     Active Substance: ARTESUNATE
     Dosage: 200 MG, ONCE DAILY (QD)
     Route: 048
     Dates: start: 20150920, end: 20151020
  31. CLOBAZAM [Suspect]
     Active Substance: CLOBAZAM
     Dosage: 5 MG/D P.R.N ()
  32. CLOBAZAM [Suspect]
     Active Substance: CLOBAZAM
  33. LEVETIRACETAM. [Suspect]
     Active Substance: LEVETIRACETAM
     Dosage: 2750 MG/D ()
  34. CLOBAZAM [Suspect]
     Active Substance: CLOBAZAM
     Dosage: ()
  35. CLOBAZAM [Suspect]
     Active Substance: CLOBAZAM
     Dosage: ()
  36. CLOBAZAM [Suspect]
     Active Substance: CLOBAZAM
     Dosage: 5 MG/D P.R.N ()
     Route: 048
  37. TEMOZOLOMIDE. [Suspect]
     Active Substance: TEMOZOLOMIDE
     Route: 048
  38. LEVETIRACETAM. [Suspect]
     Active Substance: LEVETIRACETAM
     Indication: EPILEPSY
     Dosage: 1000 MG, UNK
     Route: 065
  39. VALPROIC ACID. [Suspect]
     Active Substance: VALPROIC ACID
     Dosage: ()
  40. LORAZEPAM. [Suspect]
     Active Substance: LORAZEPAM
     Dosage: AS REQUIERD
  41. LORAZEPAM. [Suspect]
     Active Substance: LORAZEPAM
     Dosage: AS REQUIERD
  42. LORAZEPAM. [Suspect]
     Active Substance: LORAZEPAM
     Dosage: 1 MG/DAY P.R.N ()
  43. TEMOZOLOMIDE. [Suspect]
     Active Substance: TEMOZOLOMIDE
     Indication: GLIOBLASTOMA MULTIFORME
     Dosage: 50 MG/M2, UNK
     Route: 048
  44. TEMOZOLOMIDE. [Suspect]
     Active Substance: TEMOZOLOMIDE
     Dosage: 50 MG/M2/DAY ()
     Route: 048

REACTIONS (22)
  - Condition aggravated [Recovered/Resolved]
  - Product use in unapproved indication [Unknown]
  - Intentional product misuse [Unknown]
  - Gamma-glutamyltransferase increased [Recovered/Resolved]
  - Depressed mood [Recovered/Resolved]
  - Monocyte count decreased [Recovered/Resolved]
  - Hepatotoxicity [Recovered/Resolved]
  - Weight decreased [Recovered/Resolved]
  - Leukopenia [Unknown]
  - Overdose [Unknown]
  - Fatigue [Recovered/Resolved]
  - Alanine aminotransferase increased [Recovered/Resolved]
  - Drug-induced liver injury [Recovered/Resolved]
  - Nausea [Recovered/Resolved]
  - Drug interaction [Recovered/Resolved]
  - Aspartate aminotransferase increased [Recovered/Resolved]
  - Hepatic enzyme increased [Recovered/Resolved]
  - White blood cell count decreased [Recovered/Resolved]
  - Dyspepsia [Recovered/Resolved]
  - Asthenia [Recovered/Resolved]
  - Chest pain [Recovering/Resolving]
  - Blood lactate dehydrogenase increased [Recovered/Resolved]

NARRATIVE: CASE EVENT DATE: 201509
